FAERS Safety Report 11828857 (Version 2)
Quarter: 2017Q4

REPORT INFORMATION
  Report Type: Spontaneous
  Country: US (occurrence: US)
  Receive Date: 20151211
  Receipt Date: 20171222
  Transmission Date: 20180320
  Serious: Yes (Hospitalization, Other)
  Sender: FDA-Public Use
  Company Number: US-ASTRAZENECA-2015SF20771

PATIENT
  Age: 59 Year
  Sex: Female
  Weight: 59.9 kg

DRUGS (4)
  1. NEXIUM [Suspect]
     Active Substance: ESOMEPRAZOLE MAGNESIUM
     Indication: GASTROOESOPHAGEAL REFLUX DISEASE
     Route: 048
     Dates: start: 2007
  2. BYDUREON [Suspect]
     Active Substance: EXENATIDE
     Indication: TYPE 2 DIABETES MELLITUS
     Route: 058
     Dates: start: 2014
  3. ALPRAZOLAM. [Concomitant]
     Active Substance: ALPRAZOLAM
     Indication: PANIC DISORDER
     Route: 048
     Dates: start: 1993
  4. PROZAC [Concomitant]
     Active Substance: FLUOXETINE HYDROCHLORIDE
     Indication: PANIC DISORDER
     Route: 048
     Dates: start: 1993

REACTIONS (13)
  - Injection site pruritus [Unknown]
  - Haematemesis [Unknown]
  - Nausea [Recovered/Resolved]
  - Feeling hot [Unknown]
  - Ulcer haemorrhage [Unknown]
  - Hypersomnia [Unknown]
  - Product quality issue [Unknown]
  - Intentional product misuse [Unknown]
  - Headache [Unknown]
  - Vomiting [Recovered/Resolved]
  - Injection site mass [Unknown]
  - Feeling abnormal [Unknown]
  - Weight fluctuation [Unknown]

NARRATIVE: CASE EVENT DATE: 2014
